FAERS Safety Report 5794892-1 (Version None)
Quarter: 2008Q2

REPORT INFORMATION
  Report Type: 
  Country: None (occurrence: None)
  Receive Date: 20080630
  Receipt Date: 20080617
  Transmission Date: 20081010
  Serious: Yes (Other)
  Sender: FDA-Public Use
  Company Number: CA-BAYER-200812526BCC

PATIENT
  Sex: Female

DRUGS (1)
  1. CANESTEN TOPICAL CREAM [Suspect]
     Indication: TINEA INFECTION
     Route: 061

REACTIONS (1)
  - CONVULSION [None]
